FAERS Safety Report 15007399 (Version 1)
Quarter: 2018Q2

REPORT INFORMATION
  Report Type: Spontaneous
  Country: US (occurrence: US)
  Receive Date: 20180613
  Receipt Date: 20180613
  Transmission Date: 20180711
  Serious: Yes (Hospitalization, Other)
  Sender: FDA-Public Use
  Company Number: US-BAYER-2018-107194

PATIENT
  Age: 59 Year
  Sex: Male

DRUGS (4)
  1. ALIQOPA [Suspect]
     Active Substance: COPANLISIB
     Indication: PRIMARY GASTROINTESTINAL FOLLICULAR LYMPHOMA
     Dosage: 60 MG TOTAL DAILY DOSE (D 1, 8, 15, Q28D)
     Route: 042
     Dates: start: 20171226
  2. FLUCONAZOLE. [Concomitant]
     Active Substance: FLUCONAZOLE
  3. CALCITONIN [Concomitant]
     Active Substance: CALCITONIN
  4. LASIX [Concomitant]
     Active Substance: FUROSEMIDE

REACTIONS (4)
  - Mycetoma mycotic [None]
  - Hypercalcaemia [None]
  - Renal failure [None]
  - Asthenia [None]

NARRATIVE: CASE EVENT DATE: 20180131
